FAERS Safety Report 7272408-0 (Version None)
Quarter: 2011Q1

REPORT INFORMATION
  Report Type: 
  Country: None (occurrence: None)
  Receive Date: 20110203
  Receipt Date: 20101213
  Transmission Date: 20110831
  Serious: Yes (Hospitalization, Other)
  Sender: FDA-Public Use
  Company Number: US-BAYER-201040407NA

PATIENT
  Sex: Female
  Weight: 58.05 kg

DRUGS (2)
  1. MIRENA [Suspect]
     Indication: CONTRACEPTION
     Dosage: UNK UNK, CONT
     Route: 015
     Dates: start: 20030101, end: 20060101
  2. MIRENA [Suspect]
     Dosage: UNK UNK, CONT
     Route: 015
     Dates: start: 20080101

REACTIONS (6)
  - PAIN [None]
  - CONVULSION [None]
  - IRRITABILITY [None]
  - AMENORRHOEA [None]
  - MIGRAINE [None]
  - LIBIDO DECREASED [None]
